FAERS Safety Report 8299840-0 (Version None)
Quarter: 2012Q2

REPORT INFORMATION
  Report Type: 
  Country: None (occurrence: None)
  Receive Date: 20120419
  Receipt Date: 20120409
  Transmission Date: 20120825
  Serious: Yes (Death)
  Sender: FDA-Public Use
  Company Number: JP-BAXTER-2012BAX001454

PATIENT
  Sex: Female

DRUGS (3)
  1. DIANEAL 137 W/ DEXTROSE 2.5% IN PLASTIC CONTAINER [Suspect]
     Dosage: ONCE DAILY
     Route: 033
  2. DIANEAL PD-4 4.25 [Suspect]
     Route: 033
  3. EXTRANEAL [Suspect]
     Dosage: DAILY

REACTIONS (2)
  - INFECTIOUS PERITONITIS [None]
  - GANGRENE [None]
